FAERS Safety Report 6559396-7 (Version None)
Quarter: 2010Q1

REPORT INFORMATION
  Report Type: 
  Country: None (occurrence: None)
  Receive Date: 20100129
  Receipt Date: 20091009
  Transmission Date: 20100710
  Serious: No
  Sender: FDA-Public Use
  Company Number: US-ABBOTT-09P-163-0594581-00

PATIENT
  Sex: Female
  Weight: 105.78 kg

DRUGS (2)
  1. HUMIRA [Suspect]
     Indication: PSORIASIS
     Dosage: DAY 1
     Dates: start: 20090827
  2. HUMIRA [Suspect]
     Dates: start: 20090902

REACTIONS (5)
  - EYE PAIN [None]
  - MALAISE [None]
  - RHINITIS [None]
  - SINUSITIS [None]
  - UPPER RESPIRATORY TRACT INFECTION [None]
